FAERS Safety Report 10373949 (Version 1)
Quarter: 2014Q1

REPORT INFORMATION
  Report Type: Spontaneous
  Country: US (occurrence: None)
  Receive Date: 20140306
  Receipt Date: 20140306
  Transmission Date: 20141002
  Serious: Yes (Other)
  Sender: FDA-Public Use
  Company Number: 163-21880-13014050

PATIENT
  Age: 59 Year
  Sex: Male

DRUGS (8)
  1. REVLIMID [Suspect]
     Indication: PLASMA CELL MYELOMA
     Dosage: 21 IN 28 DAYS
     Route: 048
     Dates: start: 20121112, end: 20121227
  2. ACYCLOVIR (ACICLOVIR) (ACICLOVIR) [Concomitant]
  3. CALCI-CHEW (CALCIUM CARBONATE) (UNKOWN) [Concomitant]
  4. DEXAMETHASONE (DEXAMETHASONE) (UNKNOWN) [Concomitant]
  5. VITAMIN B-12 (CYANCOBALMIN) [Concomitant]
  6. VITAMIN D (ERGOCALCIFEROL) [Concomitant]
  7. VITAMIN K (TOCOPHEROL) [Concomitant]
  8. ZONETA (ZOLENDRONIC ACID) [Concomitant]

REACTIONS (1)
  - Hepatic enzyme increased [None]
